FAERS Safety Report 7240288-5 (Version None)
Quarter: 2011Q1

REPORT INFORMATION
  Report Type: 
  Country: None (occurrence: None)
  Receive Date: 20110124
  Receipt Date: 20110114
  Transmission Date: 20110831
  Serious: Yes (Other)
  Sender: FDA-Public Use
  Company Number: PHHY2011CH02990

PATIENT
  Sex: Female

DRUGS (1)
  1. VOLTAREN [Suspect]
     Indication: TENDONITIS
     Dosage: 100 MG, PER DAY
     Route: 048
     Dates: start: 20100916, end: 20100920

REACTIONS (4)
  - EPISTAXIS [None]
  - PETECHIAE [None]
  - ANGIOEDEMA [None]
  - LIP SWELLING [None]
